FAERS Safety Report 11893328 (Version 1)
Quarter: 2016Q1

REPORT INFORMATION
  Report Type: Spontaneous
  Country: IT (occurrence: IT)
  Receive Date: 20160106
  Receipt Date: 20160106
  Transmission Date: 20160526
  Serious: Yes (Life-Threatening)
  Sender: FDA-Public Use
  Company Number: IT-ABBVIE-16P-083-1532232-00

PATIENT
  Age: 3 Year
  Sex: Male

DRUGS (1)
  1. MACLADIN [Suspect]
     Active Substance: CLARITHROMYCIN
     Indication: PHARYNGITIS
     Dosage: FORM STRENGTH: 125MG/5ML; DOSE: 5 MM PER KG OF BODY WEIGHT
     Route: 048

REACTIONS (2)
  - Dyspnoea [Unknown]
  - Lip oedema [Unknown]

NARRATIVE: CASE EVENT DATE: 20150830
